FAERS Safety Report 4675508-4 (Version None)
Quarter: 2005Q2

REPORT INFORMATION
  Report Type: 
  Country: None (occurrence: None)
  Receive Date: 20050527
  Receipt Date: 20050328
  Transmission Date: 20051028
  Serious: No
  Sender: FDA-Public Use
  Company Number: US-BRISTOL-MYERS SQUIBB COMPANY-12912481

PATIENT
  Age: 62 Year
  Sex: Female
  Weight: 59 kg

DRUGS (3)
  1. ABILIFY [Suspect]
     Indication: DEPRESSION
  2. ZOLOFT [Concomitant]
  3. LAMICTAL [Concomitant]

REACTIONS (6)
  - DYSARTHRIA [None]
  - FEELING ABNORMAL [None]
  - HALLUCINATION [None]
  - INCOHERENT [None]
  - THIRST [None]
  - URINE OUTPUT INCREASED [None]
